FAERS Safety Report 11039469 (Version 3)
Quarter: 2016Q4

REPORT INFORMATION
  Report Type: Spontaneous
  Country: US (occurrence: US)
  Receive Date: 20150416
  Receipt Date: 20161101
  Transmission Date: 20170206
  Serious: Yes (Disabling)
  Sender: FDA-Public Use
  Company Number: US-009507513-1504USA015649

PATIENT
  Sex: Male
  Weight: 74.38 kg

DRUGS (1)
  1. PROPECIA [Suspect]
     Active Substance: FINASTERIDE
     Indication: ALOPECIA
     Dosage: 1 MG, QD
     Route: 048
     Dates: start: 1999, end: 2015

REACTIONS (9)
  - Drug ineffective [Unknown]
  - Knee operation [Unknown]
  - Sexual dysfunction [Not Recovered/Not Resolved]
  - Loss of libido [Recovered/Resolved]
  - Nocturia [Unknown]
  - Erectile dysfunction [Not Recovered/Not Resolved]
  - Depression [Unknown]
  - Joint injury [Not Recovered/Not Resolved]
  - Anxiety [Unknown]

NARRATIVE: CASE EVENT DATE: 2011
